APPROVED DRUG PRODUCT: AMILORIDE HYDROCHLORIDE AND HYDROCHLOROTHIAZIDE
Active Ingredient: AMILORIDE HYDROCHLORIDE; HYDROCHLOROTHIAZIDE
Strength: EQ 5MG ANHYDROUS;50MG
Dosage Form/Route: TABLET;ORAL
Application: A073357 | Product #001
Applicant: CHARTWELL RX SCIENCES LLC
Approved: Nov 27, 1991 | RLD: No | RS: No | Type: DISCN